FAERS Safety Report 25848599 (Version 1)
Quarter: 2025Q3

REPORT INFORMATION
  Report Type: Spontaneous
  Country: EU (occurrence: EU)
  Receive Date: 20250925
  Receipt Date: 20250925
  Transmission Date: 20251020
  Serious: Yes (Hospitalization)
  Sender: ALEXION PHARMACEUTICALS
  Company Number: None

PATIENT
  Age: 94 Year
  Sex: Female
  Weight: 60 kg

DRUGS (1)
  1. DAPAGLIFLOZIN [Suspect]
     Active Substance: DAPAGLIFLOZIN
     Indication: Type 2 diabetes mellitus
     Dosage: 1 COMPRIM? LE MATIN
     Dates: start: 20250203, end: 20250717

REACTIONS (2)
  - Perineal infection [Recovering/Resolving]
  - Fungal infection [Recovering/Resolving]

NARRATIVE: CASE EVENT DATE: 20250717
